FAERS Safety Report 7832284-1 (Version None)
Quarter: 2011Q4

REPORT INFORMATION
  Report Type: 
  Country: None (occurrence: None)
  Receive Date: 20111022
  Receipt Date: 20100209
  Transmission Date: 20120403
  Serious: No
  Sender: FDA-Public Use
  Company Number: US-BAYER-201013683NA

PATIENT
  Sex: Male

DRUGS (1)
  1. LEVITRA [Suspect]
     Dosage: DAILY DOSE 20 MG
     Route: 048
     Dates: start: 20030101

REACTIONS (1)
  - DRUG INEFFECTIVE [None]
